FAERS Safety Report 5193438-9 (Version None)
Quarter: 2006Q4

REPORT INFORMATION
  Report Type: 
  Country: None (occurrence: None)
  Receive Date: 20061228
  Receipt Date: 20060419
  Transmission Date: 20070319
  Serious: No
  Sender: FDA-Public Use
  Company Number: US-GLAXOSMITHKLINE-A0602490A

PATIENT
  Age: 8 Year
  Sex: Female

DRUGS (7)
  1. FLONASE [Suspect]
     Route: 045
     Dates: start: 20041101
  2. FLOVENT [Concomitant]
  3. ZYRTEC [Concomitant]
  4. SINGULAIR [Concomitant]
  5. PULMICORT [Concomitant]
  6. ALBUTEROL [Concomitant]
  7. ASTELIN [Concomitant]

REACTIONS (1)
  - DYSURIA [None]
